FAERS Safety Report 22319460 (Version 2)
Quarter: 2023Q2

REPORT INFORMATION
  Report Type: Report from Study
  Country: MX (occurrence: MX)
  Receive Date: 20230515
  Receipt Date: 20230516
  Transmission Date: 20230721
  Serious: Yes (Other)
  Sender: FDA-Public Use
  Company Number: MX-Merck Healthcare KGaA-9393429

PATIENT
  Sex: Male

DRUGS (11)
  1. CETUXIMAB [Suspect]
     Active Substance: CETUXIMAB
     Indication: Colorectal cancer
     Dosage: 850 MG, 2/M (ONCE IN 2 WEEK)
     Route: 042
     Dates: start: 20220201
  2. CETUXIMAB [Suspect]
     Active Substance: CETUXIMAB
     Dosage: 680 MG, 2/M (ONCE IN 2 WEEK)
     Route: 042
     Dates: start: 20220512
  3. FLUOROURACIL [Suspect]
     Active Substance: FLUOROURACIL
     Indication: Colorectal cancer
     Dosage: UNK UNK, UNKNOWN
     Route: 042
  4. LEUCOVORIN [Suspect]
     Active Substance: LEUCOVORIN
     Indication: Colorectal cancer
     Dosage: UNK UNK, OTHER (BEFORE THE INFUSER RECEIVED LEUCOVORIN MEDICATION)
     Route: 065
  5. IRINOTECAN [Suspect]
     Active Substance: IRINOTECAN
     Indication: Colorectal cancer
     Dosage: UNK UNK, UNKNOWN
     Route: 065
  6. EXFORGE HCT [Concomitant]
     Active Substance: AMLODIPINE BESYLATE\HYDROCHLOROTHIAZIDE\VALSARTAN
     Indication: Hypertension
     Dosage: UNK, DAILY
     Route: 048
  7. ASPIRIN [Concomitant]
     Active Substance: ASPIRIN
     Indication: Thrombosis prophylaxis
     Dosage: UNK, DAILY
     Route: 048
  8. ONDANSETRON [Concomitant]
     Active Substance: ONDANSETRON
     Indication: Product used for unknown indication
     Dosage: UNK
  9. HEPARIN [Concomitant]
     Active Substance: HEPARIN SODIUM
     Indication: Product used for unknown indication
     Dosage: 2 DAYS AFTER THE INFUSER WAS WITHDRAWN PATIENT RECEIVED HEPARIN WITH A PRE-FILLED SYRINGE
  10. GARLIC [Concomitant]
     Active Substance: GARLIC
     Indication: Product used for unknown indication
     Dosage: UNK
  11. FISH OIL [Concomitant]
     Active Substance: FISH OIL
     Indication: Supplementation therapy
     Dosage: PILLS

REACTIONS (2)
  - Tongue injury [Recovering/Resolving]
  - Off label use [Unknown]
